FAERS Safety Report 25432024 (Version 1)
Quarter: 2025Q2

REPORT INFORMATION
  Report Type: Spontaneous
  Country: JP (occurrence: JP)
  Receive Date: 20250613
  Receipt Date: 20250613
  Transmission Date: 20250717
  Serious: Yes (Hospitalization)
  Sender: NOVO NORDISK
  Company Number: JP-NOVOPROD-1452000

PATIENT
  Age: 66 Year
  Sex: Male

DRUGS (1)
  1. TRESIBA [Suspect]
     Active Substance: INSULIN DEGLUDEC
     Indication: Type 2 diabetes mellitus
     Route: 058
     Dates: end: 20250501

REACTIONS (4)
  - Infection [Recovered/Resolved]
  - Hypoglycaemia [Recovered/Resolved]
  - Glycated albumin increased [Recovered/Resolved]
  - Blood glucose increased [Recovered/Resolved]
